FAERS Safety Report 19012640 (Version 1)
Quarter: 2021Q1

REPORT INFORMATION
  Report Type: Spontaneous
  Country: FR (occurrence: FR)
  Receive Date: 20210315
  Receipt Date: 20210315
  Transmission Date: 20210420
  Serious: Yes (Other)
  Sender: FDA-Public Use
  Company Number: FR-GLAXOSMITHKLINE-FR2021058023

PATIENT
  Age: 66 Year
  Sex: Male
  Weight: 97 kg

DRUGS (1)
  1. TRELEGY ELLIPTA [Suspect]
     Active Substance: FLUTICASONE FUROATE\UMECLIDINIUM BROMIDE\VILANTEROL TRIFENATATE
     Indication: CHRONIC OBSTRUCTIVE PULMONARY DISEASE
     Dosage: UNK
     Route: 030
     Dates: start: 20180801

REACTIONS (6)
  - Aggression [Not Recovered/Not Resolved]
  - Anger [Not Recovered/Not Resolved]
  - Paranoia [Not Recovered/Not Resolved]
  - Mental disorder [Not Recovered/Not Resolved]
  - Thinking abnormal [Not Recovered/Not Resolved]
  - Irritability [Not Recovered/Not Resolved]
